FAERS Safety Report 14536731 (Version 2)
Quarter: 2018Q1

REPORT INFORMATION
  Report Type: Spontaneous
  Country: FR (occurrence: FR)
  Receive Date: 20180215
  Receipt Date: 20180226
  Transmission Date: 20180509
  Serious: Yes (Hospitalization, Disabling, Other)
  Sender: FDA-Public Use
  Company Number: FR-MYLANLABS-2018M1009873

PATIENT
  Age: 51 Year
  Sex: Male

DRUGS (3)
  1. ATORVASTATIN [Suspect]
     Active Substance: ATORVASTATIN
     Indication: PRODUCT USED FOR UNKNOWN INDICATION
     Dosage: 80 MG, QD
  2. FUSIDIC ACID [Interacting]
     Active Substance: FUSIDIC ACID
     Indication: OSTEITIS
     Dosage: 1500 MG, TID
  3. OFLOXACIN. [Concomitant]
     Active Substance: OFLOXACIN
     Indication: OSTEITIS
     Dosage: UNK

REACTIONS (2)
  - Drug interaction [Recovered/Resolved with Sequelae]
  - Rhabdomyolysis [Recovered/Resolved with Sequelae]

NARRATIVE: CASE EVENT DATE: 201602
